FAERS Safety Report 23497636 (Version 1)
Quarter: 2024Q1

REPORT INFORMATION
  Report Type: Spontaneous
  Country: DK (occurrence: DK)
  Receive Date: 20240208
  Receipt Date: 20240208
  Transmission Date: 20240410
  Serious: Yes (Other)
  Sender: FDA-Public Use
  Company Number: None

PATIENT
  Age: 16 Year
  Sex: Female
  Weight: 43.4 kg

DRUGS (2)
  1. PROLIA [Suspect]
     Active Substance: DENOSUMAB
     Indication: Osteonecrosis
     Dosage: UNK (DOSAGE: 40 MG ON 26OCT2022 AND 14DEC2022 AND 26APR2023 AND 42 MG ON 11OCT2023.STRENGTH: 60 MG/M
     Route: 058
     Dates: start: 20221026
  2. ACLASTA [Suspect]
     Active Substance: ZOLEDRONIC ACID
     Indication: Osteonecrosis
     Dosage: UNK (DOSAGE: 1.1 MG GIVEN ON 16NOV2022 AND 08FEB2023 AND 1 MG GIVEN ON 19JUL2023STRENGTH: 5 MG/100 M
     Route: 040
     Dates: start: 20221116

REACTIONS (3)
  - Osteonecrosis [Unknown]
  - Bone fragmentation [Not Recovered/Not Resolved]
  - Off label use [Unknown]

NARRATIVE: CASE EVENT DATE: 20230101
